FAERS Safety Report 25201411 (Version 1)
Quarter: 2025Q2

REPORT INFORMATION
  Report Type: Spontaneous
  Country: US (occurrence: US)
  Receive Date: 20250416
  Receipt Date: 20250416
  Transmission Date: 20250716
  Serious: No
  Sender: ABBVIE
  Company Number: US-ABBVIE-6228463

PATIENT
  Age: 21 Year
  Sex: Female

DRUGS (1)
  1. HUMIRA [Suspect]
     Active Substance: ADALIMUMAB
     Indication: Psoriatic arthropathy
     Route: 058
     Dates: start: 2025

REACTIONS (3)
  - Malaise [Unknown]
  - Injection site haemorrhage [Unknown]
  - Injection site discharge [Not Recovered/Not Resolved]

NARRATIVE: CASE EVENT DATE: 20250101
